FAERS Safety Report 5615219-1 (Version None)
Quarter: 2008Q1

REPORT INFORMATION
  Report Type: 
  Country: None (occurrence: None)
  Receive Date: 20080205
  Receipt Date: 20080205
  Transmission Date: 20080703
  Serious: Yes (Hospitalization)
  Sender: FDA-Public Use
  Company Number: None

PATIENT
  Age: 74 Year
  Sex: Male
  Weight: 74.3899 kg

DRUGS (2)
  1. PEMETREXED [Suspect]
     Indication: NON-SMALL CELL LUNG CANCER
     Dosage: 965MG  EVERY 3 WEEKS  IV DRIP
     Route: 041
     Dates: start: 20080122, end: 20080122
  2. CELECOXIB [Suspect]
     Dosage: 600MG  DAILY  PO
     Route: 048
     Dates: start: 20080108, end: 20080201

REACTIONS (1)
  - RECTAL HAEMORRHAGE [None]
